FAERS Safety Report 5100695-3 (Version None)
Quarter: 2006Q3

REPORT INFORMATION
  Report Type: 
  Country: None (occurrence: None)
  Receive Date: 20060906
  Receipt Date: 20060829
  Transmission Date: 20061208
  Serious: Yes (Death, Hospitalization)
  Sender: FDA-Public Use
  Company Number: B0345520A

PATIENT
  Age: 10 Year
  Sex: Female

DRUGS (2)
  1. AMOXIL [Suspect]
     Indication: UPPER RESPIRATORY TRACT INFECTION
     Dosage: ORAL
     Route: 048
     Dates: start: 19870117
  2. MEROPENEM [Concomitant]

REACTIONS (17)
  - ACTINOMYCOSIS [None]
  - ANAPHYLACTIC SHOCK [None]
  - BLINDNESS UNILATERAL [None]
  - BRONCHIECTASIS [None]
  - BULLOUS LUNG DISEASE [None]
  - CORNEAL OPACITY [None]
  - CYANOSIS [None]
  - HEPATIC FUNCTION ABNORMAL [None]
  - LUNG HYPERINFLATION [None]
  - OBLITERATIVE BRONCHIOLITIS [None]
  - PLEURAL ADHESION [None]
  - PNEUMONIA [None]
  - PNEUMOTHORAX [None]
  - POST PROCEDURAL COMPLICATION [None]
  - PSEUDOMONAS INFECTION [None]
  - RESPIRATORY FAILURE [None]
  - STEVENS-JOHNSON SYNDROME [None]
